FAERS Safety Report 5661248-1 (Version None)
Quarter: 2008Q1

REPORT INFORMATION
  Report Type: 
  Country: None (occurrence: None)
  Receive Date: 20080312
  Receipt Date: 20080303
  Transmission Date: 20080703
  Serious: Yes (Other)
  Sender: FDA-Public Use
  Company Number: B0505094A

PATIENT
  Sex: Female

DRUGS (1)
  1. VENTOLIN [Suspect]
     Indication: DRUG USE FOR UNKNOWN INDICATION
     Route: 065

REACTIONS (5)
  - ASTHMA [None]
  - DYSGEUSIA [None]
  - GENERAL PHYSICAL HEALTH DETERIORATION [None]
  - LOWER RESPIRATORY TRACT INFECTION [None]
  - PHARMACEUTICAL PRODUCT COMPLAINT [None]
